FAERS Safety Report 16464976 (Version 1)
Quarter: 2019Q2

REPORT INFORMATION
  Report Type: Spontaneous
  Country: TR (occurrence: TR)
  Receive Date: 20190621
  Receipt Date: 20190621
  Transmission Date: 20190711
  Serious: Yes (Other)
  Sender: FDA-Public Use
  Company Number: TR-SA-2019SA166007

PATIENT
  Age: 65 Year
  Sex: Male
  Weight: 87 kg

DRUGS (2)
  1. TAMPROST [Suspect]
     Active Substance: TAMSULOSIN HYDROCHLORIDE
     Indication: PROSTATOMEGALY
     Dosage: 1 DF, QD
     Route: 048
  2. TAMPROST [Suspect]
     Active Substance: TAMSULOSIN HYDROCHLORIDE
     Indication: DYSURIA

REACTIONS (6)
  - Palpitations [Unknown]
  - Heart rate irregular [Recovered/Resolved with Sequelae]
  - Ejaculation disorder [Recovered/Resolved with Sequelae]
  - Heart rate increased [Recovered/Resolved with Sequelae]
  - Epistaxis [Recovered/Resolved with Sequelae]
  - Vision blurred [Unknown]

NARRATIVE: CASE EVENT DATE: 20190220
